FAERS Safety Report 22098289 (Version 1)
Quarter: 2023Q1

REPORT INFORMATION
  Report Type: Spontaneous
  Country: IT (occurrence: None)
  Receive Date: 20230315
  Receipt Date: 20230315
  Transmission Date: 20230418
  Serious: Yes (Hospitalization)
  Sender: FDA-Public Use
  Company Number: IT-HQ-20230007

PATIENT
  Age: 47 Year
  Sex: Female

DRUGS (2)
  1. MEROPENEM [Suspect]
     Active Substance: MEROPENEM
     Indication: Meningitis
     Dosage: 2 G TID
     Route: 040
  2. LINEZOLID [Suspect]
     Active Substance: LINEZOLID
     Indication: CNS ventriculitis
     Dosage: 600 MG BID
     Route: 040

REACTIONS (3)
  - Anaemia [Recovered/Resolved]
  - Confusional state [Recovered/Resolved]
  - Off label use [Unknown]
